FAERS Safety Report 14928556 (Version 1)
Quarter: 2018Q2

REPORT INFORMATION
  Report Type: Spontaneous
  Country: US (occurrence: US)
  Receive Date: 20180523
  Receipt Date: 20180523
  Transmission Date: 20180711
  Serious: Yes (Other)
  Sender: FDA-Public Use
  Company Number: US-SILVERGATE PHARMACEUTICALS, INC.-2018SIL00020

PATIENT
  Age: 17 Year
  Sex: Female

DRUGS (6)
  1. SODIUM BICARBONATE. [Concomitant]
     Active Substance: SODIUM BICARBONATE
     Route: 065
  2. CISPLATIN. [Concomitant]
     Active Substance: CISPLATIN
     Route: 065
  3. 5% DEXTROSE IN HALF-STRENGTH SALINE [Concomitant]
     Dosage: 125 ML/M^2
     Route: 065
  4. METHOTREXATE. [Suspect]
     Active Substance: METHOTREXATE
     Indication: OSTEOSARCOMA
     Dosage: 12 G/M^2
     Route: 042
  5. DOXORUBICIN [Concomitant]
     Active Substance: DOXORUBICIN
     Route: 065
  6. LEUCOVORIN. [Concomitant]
     Active Substance: LEUCOVORIN
     Dosage: 135 ML/H
     Route: 042

REACTIONS (3)
  - Pleural effusion [Unknown]
  - Acute kidney injury [Recovering/Resolving]
  - Hypoalbuminaemia [Unknown]
